FAERS Safety Report 8202969-6 (Version None)
Quarter: 2012Q1

REPORT INFORMATION
  Report Type: 
  Country: None (occurrence: None)
  Receive Date: 20120312
  Receipt Date: 20120305
  Transmission Date: 20120608
  Serious: Yes (Life-Threatening, Hospitalization)
  Sender: FDA-Public Use
  Company Number: CA-CELGENEUS-028-21880-11121533

PATIENT
  Sex: Male

DRUGS (10)
  1. HYDROMORPHONE HCL [Concomitant]
     Route: 065
  2. CRESTOR [Concomitant]
     Route: 065
  3. AREDIA [Concomitant]
     Route: 065
  4. GABAPENTIN [Concomitant]
     Route: 065
  5. PLAVIX [Concomitant]
     Route: 065
  6. REVLIMID [Suspect]
     Dosage: 15 MILLIGRAM
     Route: 048
     Dates: start: 20111115, end: 20120107
  7. MICARDIS [Concomitant]
     Route: 065
  8. HYDROCHLOROTHIAZIDE [Concomitant]
     Route: 065
  9. FENTANYL [Concomitant]
     Route: 065
  10. ATENOLOL [Concomitant]
     Route: 065

REACTIONS (2)
  - PNEUMONIA [None]
  - SEPSIS [None]
